FAERS Safety Report 8299183-5 (Version None)
Quarter: 2012Q2

REPORT INFORMATION
  Report Type: 
  Country: None (occurrence: None)
  Receive Date: 20120419
  Receipt Date: 20120410
  Transmission Date: 20120825
  Serious: Yes (Hospitalization)
  Sender: FDA-Public Use
  Company Number: US-ACTELION-A-US2012-63938

PATIENT

DRUGS (4)
  1. COUMADIN [Concomitant]
  2. SILDENAFIL [Concomitant]
     Indication: PULMONARY ARTERIAL HYPERTENSION
  3. TRACLEER [Suspect]
     Indication: PULMONARY ARTERIAL HYPERTENSION
     Dosage: UNK
     Route: 048
     Dates: start: 20100806, end: 20120229
  4. DIGOXIN [Concomitant]

REACTIONS (2)
  - SPINAL FUSION SURGERY [None]
  - SPINAL DECOMPRESSION [None]
